FAERS Safety Report 5159396-8 (Version None)
Quarter: 2006Q4

REPORT INFORMATION
  Report Type: 
  Country: None (occurrence: None)
  Receive Date: 20061128
  Receipt Date: 20061116
  Transmission Date: 20070319
  Serious: Yes (Hospitalization)
  Sender: FDA-Public Use
  Company Number: GB-ALLERGAN-0607598US

PATIENT
  Age: 63 Year
  Sex: Female
  Weight: 54.875 kg

DRUGS (8)
  1. BOTOX 100 UNITS [Suspect]
     Indication: SKIN WRINKLING
     Dosage: 44 UNITS, SINGLE
     Route: 030
     Dates: start: 20061103, end: 20061103
  2. RESTYLANE                          /00567501/ [Suspect]
     Indication: SKIN WRINKLING
     Dates: start: 20061103, end: 20061103
  3. LIDOCAINE [Suspect]
     Indication: ANAESTHESIA
     Dates: start: 20061103, end: 20061103
  4. EMLA                               /00675501/ [Concomitant]
     Dates: start: 20061103, end: 20061103
  5. DIURETICS [Concomitant]
     Indication: HYPERTENSION
     Dosage: UNK, QD
  6. VENTOLIN [Concomitant]
     Indication: ASTHMA
     Dosage: UNK, QD
  7. PREMARIN [Concomitant]
     Dosage: UNK, QD
  8. CLARYTINE [Concomitant]
     Indication: SEASONAL ALLERGY

REACTIONS (3)
  - CONTUSION [None]
  - HYPERSENSITIVITY [None]
  - SWELLING FACE [None]
